FAERS Safety Report 17183258 (Version 2)
Quarter: 2019Q4

REPORT INFORMATION
  Report Type: Report from Study
  Country: AR (occurrence: AR)
  Receive Date: 20191220
  Receipt Date: 20191227
  Transmission Date: 20200122
  Serious: Yes (Life-Threatening, Hospitalization, Other)
  Sender: FDA-Public Use
  Company Number: NVSC2019AR073938

PATIENT
  Age: 77 Year
  Sex: Female

DRUGS (2)
  1. PAZOPATER [Suspect]
     Active Substance: PAZOPANIB HYDROCHLORIDE
     Indication: PRODUCT USED FOR UNKNOWN INDICATION
     Dosage: UNK
     Route: 065
  2. AFINITOR [Suspect]
     Active Substance: EVEROLIMUS
     Indication: RENAL CANCER
     Dosage: 10 MG, QD
     Route: 065
     Dates: start: 20190315, end: 201905

REACTIONS (10)
  - Pneumonia [Recovering/Resolving]
  - Malignant neoplasm progression [Recovering/Resolving]
  - Hypertension [Unknown]
  - Diabetes mellitus [Recovering/Resolving]
  - Weight decreased [Recovering/Resolving]
  - Drug intolerance [Recovering/Resolving]
  - Asthenia [Recovering/Resolving]
  - Gait inability [Recovering/Resolving]
  - Renal cancer [Recovering/Resolving]
  - Depressed mood [Recovering/Resolving]

NARRATIVE: CASE EVENT DATE: 201903
